FAERS Safety Report 7581523-3 (Version None)
Quarter: 2011Q2

REPORT INFORMATION
  Report Type: 
  Country: None (occurrence: None)
  Receive Date: 20110629
  Receipt Date: 20110622
  Transmission Date: 20111010
  Serious: Yes (Other)
  Sender: FDA-Public Use
  Company Number: PHHY2011US56272

PATIENT
  Sex: Male

DRUGS (1)
  1. FANAPT [Suspect]
     Indication: BIPOLAR DISORDER
     Dosage: 1 MG, QD
     Dates: start: 20110618, end: 20110619

REACTIONS (6)
  - PHARYNGEAL OEDEMA [None]
  - THROAT TIGHTNESS [None]
  - HYPERSENSITIVITY [None]
  - RASH [None]
  - RASH MACULAR [None]
  - FEELING ABNORMAL [None]
